FAERS Safety Report 5565173-6 (Version None)
Quarter: 2007Q4

REPORT INFORMATION
  Report Type: 
  Country: None (occurrence: None)
  Receive Date: 20071213
  Receipt Date: 20071213
  Transmission Date: 20080405
  Serious: Yes (Other)
  Sender: FDA-Public Use
  Company Number: None

PATIENT
  Sex: Male
  Weight: 62.5964 kg

DRUGS (1)
  1. NICOTINE POLACRILEX [Suspect]
     Indication: SMOKING CESSATION THERAPY
     Dosage: 1 PIECE OF 4 MG EVERY URGE TO SMOKE
     Dates: start: 20071212, end: 20071212

REACTIONS (3)
  - DYSPNOEA [None]
  - HICCUPS [None]
  - THROAT IRRITATION [None]
